FAERS Safety Report 8793032 (Version 1)
Quarter: 2012Q4

REPORT INFORMATION
  Report Type: 
  Country: DE (occurrence: DE)
  Receive Date: 20120918
  Receipt Date: 20120918
  Transmission Date: 20130627
  Serious: Yes (Hospitalization, Other)
  Sender: FDA-Public Use
  Company Number: DE-VERTEX PHARMACEUTICAL INC.-000000000000000140

PATIENT
  Age: 50 Year
  Sex: Male

DRUGS (4)
  1. INCIVO [Suspect]
     Indication: HEPATITIS C
     Dosage: 2250 mg, UNK
     Route: 048
     Dates: start: 20111109
  2. COPEGUS [Suspect]
     Indication: HEPATITIS C
     Dosage: 1200 mg, UNK
     Route: 048
     Dates: start: 20111109
  3. COPEGUS [Suspect]
     Dosage: 800 mg, qd
     Route: 048
     Dates: end: 20120126
  4. PEGASYS [Concomitant]
     Indication: HEPATITIS C
     Dosage: Dosage Form: Unspecified
     Route: 048
     Dates: start: 20111109

REACTIONS (2)
  - Renal failure acute [Recovered/Resolved]
  - Anaemia [Recovered/Resolved]
